FAERS Safety Report 15598239 (Version 1)
Quarter: 2018Q4

REPORT INFORMATION
  Report Type: Spontaneous
  Country: US (occurrence: US)
  Receive Date: 20181105
  Receipt Date: 20181105
  Transmission Date: 20190205
  Serious: No
  Sender: FDA-Public Use
  Company Number: None

PATIENT
  Age: 33 Year
  Sex: Female

DRUGS (3)
  1. OMNITROPE [Suspect]
     Active Substance: SOMATROPIN
     Route: 058
     Dates: start: 20181102
  2. PROGESTERONE. [Concomitant]
     Active Substance: PROGESTERONE
  3. ESTRADO [Concomitant]

REACTIONS (1)
  - Off label use [None]

NARRATIVE: CASE EVENT DATE: 20181101
